FAERS Safety Report 6438227-X (Version None)
Quarter: 2009Q4

REPORT INFORMATION
  Report Type: 
  Country: None (occurrence: None)
  Receive Date: 20091112
  Receipt Date: 20091102
  Transmission Date: 20100525
  Serious: Yes (Other)
  Sender: FDA-Public Use
  Company Number: CHPA2009PL21347

PATIENT
  Sex: Male

DRUGS (3)
  1. ACETAMINOPHEN (PARACETAMOL),PHENIRAMINE MALE,PHENYLEPHRINE HCL (NCH) [Suspect]
     Indication: UPPER RESPIRATORY TRACT INFLAMMATION
     Dosage: 3 DF, QD
     Route: 048
     Dates: start: 20091012
  2. RUTINOSCORBIN [Concomitant]
  3. XYLOGEL (XYLOMETAZOLINE HYDROCHLORIDE) [Concomitant]

REACTIONS (3)
  - BLOOD PRESSURE INCREASED [None]
  - DIPLOPIA [None]
  - HEADACHE [None]
